FAERS Safety Report 10742529 (Version 1)
Quarter: 2015Q1

REPORT INFORMATION
  Report Type: Spontaneous
  Country: TW (occurrence: TW)
  Receive Date: 20150127
  Receipt Date: 20150127
  Transmission Date: 20150721
  Serious: Yes (Hospitalization, Other)
  Sender: FDA-Public Use
  Company Number: TW-GLAXOSMITHKLINE INC.-TW2015GSK005525

PATIENT
  Age: 24 Year
  Sex: Male

DRUGS (1)
  1. RELENZA [Suspect]
     Active Substance: ZANAMIVIR
     Indication: INFLUENZA
     Dosage: UNK
     Dates: start: 20150104, end: 20150107

REACTIONS (2)
  - Seizure [Not Recovered/Not Resolved]
  - Status epilepticus [Unknown]

NARRATIVE: CASE EVENT DATE: 20150107
